FAERS Safety Report 12969332 (Version 3)
Quarter: 2016Q4

REPORT INFORMATION
  Report Type: Report from Study
  Country: US (occurrence: US)
  Receive Date: 20161123
  Receipt Date: 20161221
  Transmission Date: 20170207
  Serious: Yes (Hospitalization)
  Sender: FDA-Public Use
  Company Number: US-GILEAD-2016-0244986

PATIENT
  Age: 57 Year
  Sex: Female

DRUGS (20)
  1. GLIPIZIDE. [Concomitant]
     Active Substance: GLIPIZIDE
  2. LACTOBACILLUS BIFIDUS [Concomitant]
  3. HOMATROPINE/ HYDROCODONE [Concomitant]
  4. SILDENAFIL. [Concomitant]
     Active Substance: SILDENAFIL
  5. OXYGEN. [Concomitant]
     Active Substance: OXYGEN
  6. PROMETHAZINE [Concomitant]
     Active Substance: PROMETHAZINE\PROMETHAZINE HYDROCHLORIDE
  7. WARFARIN [Concomitant]
     Active Substance: WARFARIN
  8. SPIRONOLACTONE. [Concomitant]
     Active Substance: SPIRONOLACTONE
  9. PRAMIPEXOL [Concomitant]
     Active Substance: PRAMIPEXOLE
  10. LASIX [Concomitant]
     Active Substance: FUROSEMIDE
  11. ALBUTEROL                          /00139501/ [Concomitant]
     Active Substance: ALBUTEROL
  12. SITAGLIPTIN [Concomitant]
     Active Substance: SITAGLIPTIN
  13. OMEPRAZOLE. [Concomitant]
     Active Substance: OMEPRAZOLE
  14. CETRIZINE [Concomitant]
     Active Substance: CETIRIZINE HYDROCHLORIDE
  15. SIMVASTATIN. [Concomitant]
     Active Substance: SIMVASTATIN
  16. EPOPROSTENOL. [Concomitant]
     Active Substance: EPOPROSTENOL
  17. AMBRISENTAN [Suspect]
     Active Substance: AMBRISENTAN
     Indication: PULMONARY HYPERTENSION
     Dosage: 10 MG, QD
     Route: 048
     Dates: start: 20110818
  18. LEVEMIR [Concomitant]
     Active Substance: INSULIN DETEMIR
  19. GABAPENTIN. [Concomitant]
     Active Substance: GABAPENTIN
  20. LORAZEPAM. [Concomitant]
     Active Substance: LORAZEPAM

REACTIONS (1)
  - Rhinovirus infection [Recovered/Resolved]

NARRATIVE: CASE EVENT DATE: 20161120
